FAERS Safety Report 8803024 (Version 6)
Quarter: 2013Q2

REPORT INFORMATION
  Report Type: Spontaneous
  Country: US (occurrence: US)
  Receive Date: 20120924
  Receipt Date: 20130626
  Transmission Date: 20140414
  Serious: Yes (Hospitalization, Disabling, Other)
  Sender: FDA-Public Use
  Company Number: US-009507513-1209USA004880

PATIENT
  Sex: Female
  Weight: 73.16 kg

DRUGS (7)
  1. FOSAMAX [Suspect]
     Indication: OSTEOPENIA
     Dosage: 70 MG, UNK
     Route: 048
     Dates: start: 200301, end: 200806
  2. FOSAMAX [Suspect]
     Indication: OSTEOPOROSIS
  3. ALENDRONATE SODIUM [Suspect]
     Indication: OSTEOPENIA
     Dosage: 70 MG, QW
     Route: 048
     Dates: start: 20080716, end: 201012
  4. ALENDRONATE SODIUM [Suspect]
     Indication: OSTEOPOROSIS
  5. VITAMINS (UNSPECIFIED) [Concomitant]
     Indication: ROUTINE HEALTH MAINTENANCE
     Dosage: 1 DF, QD
     Dates: start: 2002
  6. CALCIUM (UNSPECIFIED) (+) VITAMIN D (UNSPECIFIED) [Concomitant]
     Indication: ROUTINE HEALTH MAINTENANCE
     Dosage: 1200 MG/800 IU
     Dates: start: 2002
  7. ESTROGENS (UNSPECIFIED) [Concomitant]
     Indication: PRODUCT USED FOR UNKNOWN INDICATION
     Dosage: UNK
     Dates: start: 1977, end: 2005

REACTIONS (45)
  - Intramedullary rod insertion [Recovering/Resolving]
  - Intramedullary rod insertion [Recovering/Resolving]
  - Internal fixation of fracture [Recovering/Resolving]
  - Haemorrhagic anaemia [Recovering/Resolving]
  - Packed red blood cell transfusion [Recovering/Resolving]
  - Fall [Unknown]
  - Anxiety [Not Recovered/Not Resolved]
  - Depression [Not Recovered/Not Resolved]
  - Groin pain [Not Recovered/Not Resolved]
  - Bone graft [Recovering/Resolving]
  - Fracture nonunion [Recovering/Resolving]
  - Low turnover osteopathy [Not Recovered/Not Resolved]
  - Femur fracture [Recovering/Resolving]
  - Femur fracture [Not Recovered/Not Resolved]
  - Arthralgia [Not Recovered/Not Resolved]
  - Pain in extremity [Not Recovered/Not Resolved]
  - Back pain [Not Recovered/Not Resolved]
  - Depression [Unknown]
  - Anxiety [Recovering/Resolving]
  - Pain [Not Recovered/Not Resolved]
  - Foot fracture [Unknown]
  - Lower limb fracture [Unknown]
  - Hypothyroidism [Unknown]
  - Gingival operation [Unknown]
  - Hyperlipidaemia [Unknown]
  - Leukoplakia oral [Unknown]
  - Pollakiuria [Unknown]
  - Acute respiratory failure [Unknown]
  - Pneumonia aspiration [Unknown]
  - Leukocytosis [Unknown]
  - Confusional state [Unknown]
  - Hallucination, visual [Unknown]
  - Hyperglycaemia [Unknown]
  - Arthritis [Unknown]
  - Sacroiliitis [Unknown]
  - Foot fracture [Unknown]
  - Foot fracture [Unknown]
  - Radius fracture [Unknown]
  - Ulna fracture [Unknown]
  - Closed fracture manipulation [Unknown]
  - Spinal osteoarthritis [Unknown]
  - Fall [Unknown]
  - Myalgia [Recovered/Resolved]
  - Drug hypersensitivity [Unknown]
  - Abdominal discomfort [Unknown]
